FAERS Safety Report 9460521 (Version 1)
Quarter: 2013Q3

REPORT INFORMATION
  Report Type: Report from Study
  Country: FR (occurrence: FR)
  Receive Date: 20130815
  Receipt Date: 20130815
  Transmission Date: 20140515
  Serious: Yes (Hospitalization)
  Sender: FDA-Public Use
  Company Number: FR-CELGENEUS-056-50794-13080489

PATIENT
  Age: 71 Year
  Sex: Female
  Weight: 58 kg

DRUGS (7)
  1. VIDAZA [Suspect]
     Indication: MYELODYSPLASTIC SYNDROME
     Route: 058
     Dates: start: 20130513, end: 20130523
  2. VIDAZA [Suspect]
     Dosage: 75 MILLIGRAM/SQ. METER
     Route: 058
     Dates: start: 20130610, end: 20130618
  3. VIDAZA [Suspect]
     Dosage: 50 MILLIGRAM/SQ. METER
     Route: 058
  4. IDARUBICIN [Suspect]
     Indication: MYELODYSPLASTIC SYNDROME
     Route: 041
     Dates: start: 20130513, end: 20130523
  5. IDARUBICIN [Suspect]
     Dosage: 10 MILLIGRAM/SQ. METER
     Route: 041
     Dates: start: 20130619, end: 20130619
  6. IDARUBICIN [Suspect]
     Route: 041
  7. KENZEN [Concomitant]
     Indication: HYPERTENSION
     Route: 048

REACTIONS (4)
  - Haemorrhoids [Recovered/Resolved]
  - Pancytopenia [Recovered/Resolved]
  - Asthenia [Recovered/Resolved]
  - Bacteraemia [Recovered/Resolved]
